FAERS Safety Report 9554779 (Version 2)
Quarter: 2013Q4

REPORT INFORMATION
  Report Type: Spontaneous
  Country: US (occurrence: US)
  Receive Date: 20130926
  Receipt Date: 20131017
  Transmission Date: 20140711
  Serious: Yes (Hospitalization)
  Sender: FDA-Public Use
  Company Number: US-BIOGENIDEC-2013BI091025

PATIENT
  Age: 57 Year
  Sex: Female
  Weight: 63 kg

DRUGS (11)
  1. TYSABRI [Suspect]
     Indication: MULTIPLE SCLEROSIS
     Route: 042
     Dates: start: 20130517
  2. SOLUMEDROL [Concomitant]
     Indication: MULTIPLE SCLEROSIS
     Route: 042
  3. OXYCODONE [Concomitant]
     Route: 048
  4. PERCOCET [Concomitant]
     Route: 048
  5. NORCO [Concomitant]
     Route: 048
  6. MOTRIN [Concomitant]
     Route: 048
  7. CLONAZEPAM [Concomitant]
  8. SEROQUEL [Concomitant]
     Route: 048
  9. CYMBALTA [Concomitant]
     Route: 048
  10. NEURONTIN [Concomitant]
     Route: 048
  11. TEGRETOL [Concomitant]
     Route: 048

REACTIONS (3)
  - Femur fracture [Not Recovered/Not Resolved]
  - Fall [Recovered/Resolved]
  - Ligament sprain [Unknown]
